FAERS Safety Report 7023522-6 (Version None)
Quarter: 2010Q3

REPORT INFORMATION
  Report Type: 
  Country: None (occurrence: None)
  Receive Date: 20100930
  Receipt Date: 20100924
  Transmission Date: 20110219
  Serious: Yes (Hospitalization)
  Sender: FDA-Public Use
  Company Number: FR-MERCK-1009FRA00016

PATIENT
  Age: 88 Year
  Sex: Female
  Weight: 52 kg

DRUGS (12)
  1. MODURETIC 5-50 [Suspect]
     Indication: HYPERTENSION
     Route: 048
     Dates: start: 20091101, end: 20091101
  2. MODURETIC 5-50 [Suspect]
     Route: 048
     Dates: start: 20100501, end: 20100516
  3. BENZALKONIUM BROMIDE AND CAMPHOR AND GERANIUM OIL AND NIAOULI OIL [Suspect]
     Route: 055
     Dates: start: 20100506, end: 20100515
  4. TRAMADOL HYDROCHLORIDE [Concomitant]
     Route: 048
  5. ACETAMINOPHEN AND PROPOXYPHENE HYDROCHLORIDE [Concomitant]
     Route: 048
  6. NABUMETONE [Concomitant]
     Route: 048
  7. HYDROXYZINE HYDROCHLORIDE [Concomitant]
     Route: 048
  8. CITALOPRAM HYDROBROMIDE [Concomitant]
     Route: 048
  9. LANSOPRAZOLE [Concomitant]
     Route: 048
  10. PERINDOPRIL ARGININE [Concomitant]
     Route: 048
  11. AMLODIPINE BESYLATE [Concomitant]
     Route: 048
  12. BETAMETHASONE DIPROPIONATE [Concomitant]
     Route: 061

REACTIONS (3)
  - ACUTE RESPIRATORY FAILURE [None]
  - EOSINOPHILIA [None]
  - LUNG DISORDER [None]
